FAERS Safety Report 17285905 (Version 1)
Quarter: 2020Q1

REPORT INFORMATION
  Report Type: Spontaneous
  Country: US (occurrence: US)
  Receive Date: 20200118
  Receipt Date: 20200118
  Transmission Date: 20200409
  Serious: Yes (Hospitalization, Other)
  Sender: FDA-Public Use
  Company Number: US-DRREDDYS-USA/USA/20/0118730

PATIENT
  Age: 12 Year
  Sex: Male

DRUGS (6)
  1. TERBUTALINE SULFATE. [Suspect]
     Active Substance: TERBUTALINE SULFATE
     Indication: RESPIRATORY FAILURE
     Route: 065
  2. ALBUTEROL. [Concomitant]
     Active Substance: ALBUTEROL
     Indication: STATUS ASTHMATICUS
     Route: 065
  3. BENZALKONIUM CHLORIDE. [Concomitant]
     Active Substance: BENZALKONIUM CHLORIDE
     Indication: PRODUCT USED FOR UNKNOWN INDICATION
     Route: 065
  4. MAGNESIUM [Concomitant]
     Active Substance: MAGNESIUM
     Indication: PRODUCT USED FOR UNKNOWN INDICATION
     Route: 065
  5. ISOFLURANE. [Suspect]
     Active Substance: ISOFLURANE
     Indication: RESPIRATORY FAILURE
     Route: 065
  6. IPRATROPIUM [Concomitant]
     Active Substance: IPRATROPIUM
     Indication: PRODUCT USED FOR UNKNOWN INDICATION

REACTIONS (1)
  - Drug ineffective [Recovered/Resolved]
